FAERS Safety Report 4632415-0 (Version None)
Quarter: 2005Q2

REPORT INFORMATION
  Report Type: 
  Country: None (occurrence: None)
  Receive Date: 20050411
  Receipt Date: 20050330
  Transmission Date: 20051028
  Serious: Yes (Hospitalization)
  Sender: FDA-Public Use
  Company Number: FR-JNJFOC-20050307364

PATIENT
  Sex: Male

DRUGS (6)
  1. LEUSTATINE [Suspect]
     Dosage: SUBCUTANEOUS
     Route: 058
  2. LEUSTATINE [Suspect]
     Dosage: INTRAVENOUS
     Route: 058
  3. ZYLORIC [Suspect]
     Indication: DRUG USE FOR UNKNOWN INDICATION
     Route: 049
  4. BACTRIM [Concomitant]
     Route: 065
  5. BACTRIM [Concomitant]
     Route: 065
  6. ZYTHROMAX [Concomitant]
     Route: 065

REACTIONS (1)
  - HEPATIC ENZYME INCREASED [None]
